FAERS Safety Report 8065464-3 (Version None)
Quarter: 2012Q1

REPORT INFORMATION
  Report Type: 
  Country: None (occurrence: None)
  Receive Date: 20120117
  Receipt Date: 20120106
  Transmission Date: 20120608
  Serious: Yes (Other)
  Sender: FDA-Public Use
  Company Number: DSA_48837_2012

PATIENT
  Sex: Female

DRUGS (3)
  1. AROXAT [Concomitant]
  2. BUPROPION HYDROCHLORIDE [Suspect]
     Indication: DEPRESSION
     Dosage: 150 MG, DAILY ORAL
     Route: 048
  3. SEROQUEL [Concomitant]

REACTIONS (1)
  - STRESS CARDIOMYOPATHY [None]
